FAERS Safety Report 4785153-8 (Version None)
Quarter: 2005Q3

REPORT INFORMATION
  Report Type: 
  Country: None (occurrence: None)
  Receive Date: 20050928
  Receipt Date: 20050914
  Transmission Date: 20060218
  Serious: Yes (Hospitalization, Disabling, Other)
  Sender: FDA-Public Use
  Company Number: 2005125484

PATIENT
  Age: 58 Year
  Sex: Female

DRUGS (2)
  1. NICORETTE [Suspect]
     Indication: SMOKING CESSATION THERAPY
     Dosage: TRANSDERMAL
     Route: 062
     Dates: start: 20050101, end: 20050101
  2. NICORETTE [Suspect]
     Indication: SMOKING CESSATION THERAPY
     Dosage: TWO WEEKS DOSE FOR APPROX A MONTH, ORAL TOPICAL
     Route: 048
     Dates: start: 20050510, end: 20050101

REACTIONS (8)
  - DIFFICULTY IN WALKING [None]
  - DIZZINESS [None]
  - FALL [None]
  - HYPOAESTHESIA [None]
  - INJURY [None]
  - PARALYSIS [None]
  - TONGUE PARALYSIS [None]
  - VERTIGO [None]
